FAERS Safety Report 24027739 (Version 1)
Quarter: 2024Q2

REPORT INFORMATION
  Report Type: Spontaneous
  Country: JP (occurrence: JP)
  Receive Date: 20240628
  Receipt Date: 20240628
  Transmission Date: 20240716
  Serious: Yes (Death)
  Sender: FDA-Public Use
  Company Number: JP-CHUGAI-2024013608

PATIENT
  Age: 10 Decade
  Sex: Male

DRUGS (2)
  1. TECENTRIQ [Suspect]
     Active Substance: ATEZOLIZUMAB
     Indication: Hepatocellular carcinoma
     Route: 042
  2. AVASTIN [Suspect]
     Active Substance: BEVACIZUMAB
     Indication: Hepatocellular carcinoma
     Route: 042
     Dates: start: 20240403, end: 20240403

REACTIONS (3)
  - Oedema [Not Recovered/Not Resolved]
  - Urine protein/creatinine ratio increased [Unknown]
  - Artery dissection [Fatal]

NARRATIVE: CASE EVENT DATE: 20240417
